FAERS Safety Report 23062432 (Version 3)
Quarter: 2023Q4

REPORT INFORMATION
  Report Type: Spontaneous
  Country: US (occurrence: US)
  Receive Date: 20231013
  Receipt Date: 20231113
  Transmission Date: 20240109
  Serious: Yes (Hospitalization, Other)
  Sender: FDA-Public Use
  Company Number: US-PFIZER INC-202300272084

PATIENT
  Age: 84 Year
  Sex: Female
  Weight: 61.3 kg

DRUGS (2)
  1. IBRANCE [Suspect]
     Active Substance: PALBOCICLIB
     Indication: Breast cancer female
     Dosage: 100 MG, CYCLIC, (ONE TABLET EVERY DAY FOR 3 WEEKS THEN 7 DAYS OFF)
     Route: 048
     Dates: start: 20230303, end: 20231003
  2. IBRANCE [Suspect]
     Active Substance: PALBOCICLIB
     Dosage: 125 MG, CYCLIC (ONE DAILY FOR 3 WEEKS AND THEN ONE WEEK OFF)
     Route: 048
     Dates: start: 202310, end: 20231007

REACTIONS (3)
  - Pancreatitis [Not Recovered/Not Resolved]
  - White blood cell count decreased [Recovering/Resolving]
  - Neoplasm progression [Unknown]

NARRATIVE: CASE EVENT DATE: 20230101
